FAERS Safety Report 5933002-4 (Version None)
Quarter: 2008Q4

REPORT INFORMATION
  Report Type: 
  Country: None (occurrence: None)
  Receive Date: 20081028
  Receipt Date: 20081023
  Transmission Date: 20090506
  Serious: Yes (Hospitalization)
  Sender: FDA-Public Use
  Company Number: US-BRISTOL-MYERS SQUIBB COMPANY-14381297

PATIENT
  Age: 64 Year
  Sex: Male

DRUGS (8)
  1. CARBOPLATIN [Suspect]
     Indication: NON-SMALL CELL LUNG CANCER
     Dosage: 1 DOSAGE FORM: 6 AREA UNDER CURVE
     Dates: start: 20080815, end: 20080815
  2. ABRAXANE [Suspect]
     Indication: NON-SMALL CELL LUNG CANCER
     Dosage: FIRST DOSE ON 15-AUG-2008
     Dates: start: 20080822, end: 20080822
  3. OLMESARTAN MEDOXOMIL [Concomitant]
     Indication: HYPERTENSION
  4. ADVAIR DISKUS 100/50 [Concomitant]
     Indication: CHRONIC OBSTRUCTIVE PULMONARY DISEASE
  5. ALBUTEROL [Concomitant]
  6. OXYGEN [Concomitant]
     Indication: CHRONIC OBSTRUCTIVE PULMONARY DISEASE
     Dates: start: 20080801
  7. COMPAZINE [Concomitant]
     Indication: NAUSEA
     Dates: start: 20080815
  8. LORTAB [Concomitant]
     Indication: PAIN
     Dates: start: 20080822

REACTIONS (2)
  - CONFUSIONAL STATE [None]
  - HAEMORRHOIDS [None]
